FAERS Safety Report 6983813-1 (Version None)
Quarter: 2010Q3

REPORT INFORMATION
  Report Type: 
  Country: None (occurrence: None)
  Receive Date: 20100914
  Receipt Date: 20090217
  Transmission Date: 20110219
  Serious: No
  Sender: FDA-Public Use
  Company Number: US-WYE-H08281109

PATIENT
  Weight: 61.29 kg

DRUGS (1)
  1. ADVIL LIQUI-GELS [Suspect]
     Indication: BACK PAIN
     Route: 048
     Dates: start: 20090216, end: 20090217

REACTIONS (1)
  - DYSURIA [None]
